FAERS Safety Report 18364151 (Version 1)
Quarter: 2020Q4

REPORT INFORMATION
  Report Type: Report from Study
  Country: US (occurrence: US)
  Receive Date: 20201009
  Receipt Date: 20201009
  Transmission Date: 20210114
  Serious: No
  Sender: FDA-Public Use
  Company Number: US-TERSERA THERAPEUTICS LLC-US2020GSK063377

PATIENT

DRUGS (1)
  1. ROLAPITANT HYDROCHLORIDE [Suspect]
     Active Substance: ROLAPITANT
     Dosage: 2 DF, (180MG ORALLY 1-2 HOURS PRIOR TO CHEMOTHERAPY EVERY 28 DAYS)
     Route: 048
     Dates: start: 201903

REACTIONS (3)
  - Blood glucose abnormal [Unknown]
  - Platelet disorder [Unknown]
  - Mean platelet volume abnormal [Unknown]
